FAERS Safety Report 7576503-8 (Version None)
Quarter: 2011Q2

REPORT INFORMATION
  Report Type: 
  Country: None (occurrence: None)
  Receive Date: 20110624
  Receipt Date: 20110624
  Transmission Date: 20111010
  Serious: Yes (Hospitalization)
  Sender: FDA-Public Use
  Company Number: None

PATIENT
  Age: 81 Year
  Sex: Female

DRUGS (1)
  1. ANASTROZOLE (ARIMIDEX) [Suspect]
     Indication: BREAST CANCER METASTATIC
     Dosage: 1MG OD ORAL
     Route: 048
     Dates: start: 20101220, end: 20110424

REACTIONS (8)
  - HERPES SIMPLEX [None]
  - NEOPLASM PROGRESSION [None]
  - BREAST CANCER METASTATIC [None]
  - STOMATITIS [None]
  - ALOPECIA [None]
  - UNEVALUABLE EVENT [None]
  - PLEURAL EFFUSION [None]
  - DYSPNOEA [None]
